FAERS Safety Report 5704553-2 (Version None)
Quarter: 2008Q2

REPORT INFORMATION
  Report Type: 
  Country: None (occurrence: None)
  Receive Date: 20080414
  Receipt Date: 20080401
  Transmission Date: 20081010
  Serious: Yes (Other)
  Sender: FDA-Public Use
  Company Number: US-ELI_LILLY_AND_COMPANY-US200804000949

PATIENT
  Sex: Female
  Weight: 68.027 kg

DRUGS (3)
  1. LISPRO [Suspect]
     Dosage: 18 IU, 3/D
     Route: 058
     Dates: start: 19980101
  2. INSULIN GLARGINE [Suspect]
     Dosage: 26 IU, EACH MORNING
     Route: 058
     Dates: start: 20050201
  3. INSULIN GLARGINE [Suspect]
     Dosage: 24 IU, EACH EVENING
     Route: 058
     Dates: start: 20080403

REACTIONS (1)
  - DIABETIC KETOACIDOSIS [None]
